FAERS Safety Report 24258669 (Version 1)
Quarter: 2024Q3

REPORT INFORMATION
  Report Type: Spontaneous
  Country: CN (occurrence: None)
  Receive Date: 20240828
  Receipt Date: 20240828
  Transmission Date: 20241017
  Serious: Yes (Hospitalization, Other)
  Sender: ASTRAZENECA
  Company Number: 2024A191701

PATIENT
  Age: 32904 Day
  Sex: Male
  Weight: 84 kg

DRUGS (3)
  1. TICAGRELOR [Suspect]
     Active Substance: TICAGRELOR
     Indication: Acute myocardial infarction
     Route: 048
     Dates: start: 20240112, end: 20240704
  2. INDOBUFEN [Suspect]
     Active Substance: INDOBUFEN
     Indication: Acute myocardial infarction
     Route: 048
     Dates: start: 20240501, end: 20240704
  3. ASPIRIN [Concomitant]
     Active Substance: ASPIRIN
     Indication: Antiplatelet therapy
     Dates: start: 20240112, end: 20240501

REACTIONS (3)
  - Gastrointestinal haemorrhage [Unknown]
  - Hypotension [Unknown]
  - Haemoglobin decreased [Unknown]

NARRATIVE: CASE EVENT DATE: 20240704
